FAERS Safety Report 15065658 (Version 3)
Quarter: 2018Q3

REPORT INFORMATION
  Report Type: Spontaneous
  Country: US (occurrence: US)
  Receive Date: 20180626
  Receipt Date: 20180830
  Transmission Date: 20181010
  Serious: No
  Sender: FDA-Public Use
  Company Number: US-PFIZER INC-2018256667

PATIENT
  Age: 73 Year
  Sex: Male

DRUGS (2)
  1. LYRICA [Suspect]
     Active Substance: PREGABALIN
     Indication: DIABETIC NEUROPATHY
     Dosage: UNK
  2. LYRICA [Suspect]
     Active Substance: PREGABALIN
     Indication: COMPLEX REGIONAL PAIN SYNDROME
     Dosage: 225 MG, AS NEEDED (1 CAPSULE EVERY 8 HOURS AS NEEDED)
     Route: 048

REACTIONS (9)
  - Pain [Unknown]
  - Prescribed overdose [Unknown]
  - Feeling abnormal [Unknown]
  - Drug effect incomplete [Unknown]
  - Burning sensation [Unknown]
  - Paraesthesia [Unknown]
  - Sluggishness [Unknown]
  - Asthenia [Unknown]
  - Insomnia [Unknown]
